FAERS Safety Report 4533144-4 (Version None)
Quarter: 2005Q1

REPORT INFORMATION
  Report Type: 
  Country: None (occurrence: None)
  Receive Date: 20041206
  Receipt Date: 20041021
  Transmission Date: 20050727
  Serious: No
  Sender: FDA-Public Use
  Company Number: USA041081951

PATIENT
  Age: 70 Year
  Sex: Female

DRUGS (2)
  1. CYMBALTA [Suspect]
     Indication: NERVOUS SYSTEM DISORDER
     Dosage: 30 MG DAY
     Dates: start: 20040901
  2. BLOOD PRESSURE MEDICATION [Concomitant]

REACTIONS (7)
  - COLD SWEAT [None]
  - DIZZINESS [None]
  - HYPERHIDROSIS [None]
  - MENIERE'S DISEASE [None]
  - NAUSEA [None]
  - STOMACH DISCOMFORT [None]
  - VISION BLURRED [None]
